FAERS Safety Report 11969759 (Version 1)
Quarter: 2016Q1

REPORT INFORMATION
  Report Type: Spontaneous
  Country: FR (occurrence: FR)
  Receive Date: 20160128
  Receipt Date: 20160128
  Transmission Date: 20160526
  Serious: Yes (Hospitalization, Other)
  Sender: FDA-Public Use
  Company Number: FR-BEH-2015055811

PATIENT
  Age: 31 Year
  Sex: Female
  Weight: 80 kg

DRUGS (15)
  1. PRIVIGEN [Suspect]
     Active Substance: HUMAN IMMUNOGLOBULIN G
     Dosage: MAX. INFUSION RATE 99 ML/H
     Dates: start: 20151203, end: 20151204
  2. ATARAX [Concomitant]
     Active Substance: HYDROXYZINE\HYDROXYZINE HYDROCHLORIDE
     Dates: start: 20151210
  3. PRIVIGEN [Suspect]
     Active Substance: HUMAN IMMUNOGLOBULIN G
     Dosage: INFUSION RATE 12 ML/H THEN GRADUALLY INCREASED UP TO 99 ML/H
     Dates: start: 20151210
  4. ATARAX [Concomitant]
     Active Substance: HYDROXYZINE\HYDROXYZINE HYDROCHLORIDE
     Dates: start: 20151211
  5. PRIVIGEN [Suspect]
     Active Substance: HUMAN IMMUNOGLOBULIN G
     Indication: PROPHYLAXIS
     Dosage: 1G/KG UNTIL THE END OF PREGNANCY; SECOND COURSE OF PRIVIGEN
     Route: 042
     Dates: start: 20151113, end: 20151113
  6. AERIUS [Concomitant]
     Active Substance: DESLORATADINE
     Indication: PREMEDICATION
     Dosage: 2 TABLETS
     Dates: start: 20151203
  7. OCTAGAM IMMUNE GLOBULIN (HUMAN) [Concomitant]
     Active Substance: HUMAN IMMUNOGLOBULIN G
     Dates: start: 20151127
  8. PRIVIGEN [Suspect]
     Active Substance: HUMAN IMMUNOGLOBULIN G
     Dosage: 3RD COURSE OF PRIVIGEN
     Dates: start: 20151120
  9. PRIVIGEN [Suspect]
     Active Substance: HUMAN IMMUNOGLOBULIN G
     Dosage: STARTED AT 25 ML/H THEN GRADUALLY INCREASED UP TO 102 ML/H
     Dates: start: 20151217
  10. PRIVIGEN [Suspect]
     Active Substance: HUMAN IMMUNOGLOBULIN G
     Dosage: STARTED AT 25 ML/H THEN GRADUALLY INCREASED UP TO 102 ML/H
     Dates: start: 20151217
  11. PRIVIGEN [Suspect]
     Active Substance: HUMAN IMMUNOGLOBULIN G
     Dosage: GRADUAL INCREASE UP TO 100 ML/H
     Dates: start: 20151218
  12. ATARAX [Concomitant]
     Active Substance: HYDROXYZINE\HYDROXYZINE HYDROCHLORIDE
     Dates: start: 20151218
  13. PRIVIGEN [Suspect]
     Active Substance: HUMAN IMMUNOGLOBULIN G
     Indication: NEONATAL ALLOIMMUNE THROMBOCYTOPENIA
     Dosage: 1G/KG UNTIL THE END OF PREGNANCY
     Route: 042
     Dates: start: 20151106, end: 20151106
  14. ATARAX [Concomitant]
     Active Substance: HYDROXYZINE\HYDROXYZINE HYDROCHLORIDE
     Dates: start: 20151217
  15. CELESTENE [Concomitant]
     Active Substance: BETAMETHASONE
     Dosage: 2ND INJECTION
     Dates: start: 20151220

REACTIONS (24)
  - Headache [Unknown]
  - Headache [Unknown]
  - Cough [Recovered/Resolved]
  - Pre-eclampsia [Unknown]
  - Chest discomfort [Unknown]
  - Chest discomfort [Unknown]
  - Dyspnoea [Recovered/Resolved]
  - Cough [Unknown]
  - Proteinuria [Unknown]
  - Retroplacental haematoma [Unknown]
  - Glomerular vascular disorder [Unknown]
  - Vomiting [Recovered/Resolved]
  - Exposure during pregnancy [Unknown]
  - Hypotension [Unknown]
  - Vomiting [Recovered/Resolved]
  - Caesarean section [Unknown]
  - Blood pressure increased [Unknown]
  - Albuminuria [Unknown]
  - Chest pain [Unknown]
  - Vomiting [Unknown]
  - Chest discomfort [Unknown]
  - Pre-eclampsia [Unknown]
  - Headache [Recovered/Resolved]
  - Nephropathy toxic [Unknown]

NARRATIVE: CASE EVENT DATE: 20151106
